FAERS Safety Report 5060673-X (Version None)
Quarter: 2006Q3

REPORT INFORMATION
  Report Type: 
  Country: None (occurrence: None)
  Receive Date: 20060719
  Receipt Date: 20060719
  Transmission Date: 20061208
  Serious: Yes (Hospitalization)
  Sender: FDA-Public Use
  Company Number: None

PATIENT
  Sex: Female
  Weight: 65.318 kg

DRUGS (14)
  1. VELCADE [Suspect]
     Indication: LIP AND/OR ORAL CAVITY CANCER
     Dosage: 1.6 MG/M2  WEEKLY  IV DRIP
     Route: 041
     Dates: start: 20060615, end: 20060706
  2. VELCADE [Suspect]
     Indication: ORAL CAVITY CANCER METASTATIC
     Dosage: 1.6 MG/M2  WEEKLY  IV DRIP
     Route: 041
     Dates: start: 20060615, end: 20060706
  3. TAXOTERE [Suspect]
     Dosage: 40 MG/M2 WEEKLY IV DRIP
     Route: 041
     Dates: start: 20060622, end: 20060706
  4. LEXAPRO [Concomitant]
  5. PHENERGAN HCL [Concomitant]
  6. ASPIRIN [Concomitant]
  7. ALTACE [Concomitant]
  8. CARDIZEM [Concomitant]
  9. LASIX [Concomitant]
  10. LORTAB [Concomitant]
  11. COMBIVENT [Concomitant]
  12. PROCRIT [Concomitant]
  13. MG OXIDE [Concomitant]
  14. ELIXIR [Concomitant]

REACTIONS (13)
  - ABSCESS [None]
  - BODY TEMPERATURE INCREASED [None]
  - DISCOMFORT [None]
  - ERYTHEMA [None]
  - HAEMATOCRIT DECREASED [None]
  - HAEMOGLOBIN DECREASED [None]
  - NEUTROPHIL COUNT DECREASED [None]
  - OEDEMA [None]
  - PERFORMANCE STATUS DECREASED [None]
  - PLATELET COUNT DECREASED [None]
  - SEROMA [None]
  - TRACHEOSTOMY MALFUNCTION [None]
  - WHITE BLOOD CELL COUNT DECREASED [None]
